FAERS Safety Report 4514436-1 (Version None)
Quarter: 2004Q4

REPORT INFORMATION
  Report Type: 
  Country: None (occurrence: None)
  Receive Date: 20040928
  Receipt Date: 20040602
  Transmission Date: 20050328
  Serious: No
  Sender: FDA-Public Use
  Company Number: 04P-163-0262603-00

PATIENT
  Age: 52 Year
  Sex: Female
  Weight: 72.5755 kg

DRUGS (7)
  1. HUMIRA [Suspect]
     Indication: RHEUMATOID ARTHRITIS
     Dosage: 40 MG, 1 IN 2 WK, SUBCUTANEOUS
     Route: 058
     Dates: start: 20040214, end: 20040414
  2. HUMIRA [Suspect]
     Indication: RHEUMATOID ARTHRITIS
     Dosage: 40 MG, 1 IN 2 WK, SUBCUTANEOUS
     Route: 058
     Dates: start: 20040514
  3. PREDNISONE [Concomitant]
  4. NAPROXEN [Concomitant]
  5. SERTRALINE HCL [Concomitant]
  6. HYDROCHLORIDE [Concomitant]
  7. URSODEOXYCHOLIC  ACID [Concomitant]

REACTIONS (1)
  - DRUG INEFFECTIVE [None]
